FAERS Safety Report 7546367-7 (Version None)
Quarter: 2011Q2

REPORT INFORMATION
  Report Type: 
  Country: None (occurrence: None)
  Receive Date: 20110614
  Receipt Date: 20110530
  Transmission Date: 20111010
  Serious: Yes (Other)
  Sender: FDA-Public Use
  Company Number: DE-JNJFOC-20110600849

PATIENT
  Sex: Female
  Weight: 2.58 kg

DRUGS (2)
  1. REMICADE [Suspect]
     Indication: DRUG EXPOSURE DURING PREGNANCY
     Dosage: MOM ON DRUG FROM 10-JUN-2002 TO 04-AUG-2005
     Route: 064
  2. AZATHIOPRINE [Concomitant]
     Route: 064
     Dates: start: 20060606

REACTIONS (1)
  - PREMATURE BABY [None]
